FAERS Safety Report 8994998 (Version 1)
Quarter: 2013Q1

REPORT INFORMATION
  Report Type: Spontaneous
  Country: US (occurrence: None)
  Receive Date: 20121228
  Receipt Date: 20121228
  Transmission Date: 20140127
  Serious: Yes (Hospitalization)
  Sender: FDA-Public Use
  Company Number: None

PATIENT
  Age: 68 Year
  Sex: Male
  Weight: 90.72 kg

DRUGS (7)
  1. IMIQUIMOD [Suspect]
     Route: 061
     Dates: start: 20120627, end: 20120710
  2. CENTRUM SILVER [Concomitant]
  3. SIMVASTATIN [Concomitant]
  4. NIASPAN [Concomitant]
  5. PERCOCET [Concomitant]
  6. MOTRIN [Concomitant]
  7. COLACE [Concomitant]

REACTIONS (3)
  - Accident [None]
  - Rib fracture [None]
  - Pneumothorax [None]
